FAERS Safety Report 13268433 (Version 1)
Quarter: 2017Q1

REPORT INFORMATION
  Report Type: Report from Study
  Country: BR (occurrence: BR)
  Receive Date: 20170224
  Receipt Date: 20170224
  Transmission Date: 20170428
  Serious: Yes (Hospitalization, Other)
  Sender: FDA-Public Use
  Company Number: PHHY2016BR130412

PATIENT
  Sex: Male
  Weight: 70 kg

DRUGS (1)
  1. EXELON PATCH [Suspect]
     Active Substance: RIVASTIGMINE
     Indication: PARKINSON^S DISEASE
     Dosage: 4.6 MG, QD, PATCH (5CM2)
     Route: 062
     Dates: start: 201603

REACTIONS (6)
  - Incorrect drug administration duration [Unknown]
  - Product use issue [Unknown]
  - Parkinson^s disease [Unknown]
  - Gait disturbance [Unknown]
  - Chikungunya virus infection [Unknown]
  - Musculoskeletal discomfort [Unknown]
